FAERS Safety Report 14994501 (Version 6)
Quarter: 2018Q3

REPORT INFORMATION
  Report Type: Spontaneous
  Country: US (occurrence: US)
  Receive Date: 20180611
  Receipt Date: 20180913
  Transmission Date: 20181010
  Serious: Yes (Hospitalization, Other)
  Sender: FDA-Public Use
  Company Number: US-BIOGEN-2018BI00592050

PATIENT
  Age: 33 Year
  Sex: Male
  Weight: 87.62 kg

DRUGS (1)
  1. TYSABRI [Suspect]
     Active Substance: NATALIZUMAB
     Indication: RELAPSING-REMITTING MULTIPLE SCLEROSIS
     Route: 042
     Dates: start: 20180328, end: 20180523

REACTIONS (3)
  - Septic phlebitis [Unknown]
  - Myelitis [Unknown]
  - Relapsing-remitting multiple sclerosis [Unknown]

NARRATIVE: CASE EVENT DATE: 20180525
